FAERS Safety Report 7502515-6 (Version None)
Quarter: 2011Q2

REPORT INFORMATION
  Report Type: 
  Country: None (occurrence: None)
  Receive Date: 20110517
  Receipt Date: 20110511
  Transmission Date: 20111010
  Serious: Yes (Hospitalization)
  Sender: FDA-Public Use
  Company Number: 2011GW000266

PATIENT
  Age: 65 Year
  Sex: Male
  Weight: 79.3795 kg

DRUGS (12)
  1. MULTI-VITAMINS [Concomitant]
  2. TRAMADOL HCL [Concomitant]
  3. ASPIRIN [Concomitant]
  4. METHYLPREDNISOLONE [Concomitant]
  5. RAPAFLO [Concomitant]
  6. METFORMIN HCL [Concomitant]
  7. SINGULAIR [Concomitant]
  8. ZYCLARA [Suspect]
     Indication: ACTINIC KERATOSIS
     Dosage: 3.75 PCT;QD;TOP
     Route: 061
     Dates: start: 20110328, end: 20110414
  9. PROTONIX [Concomitant]
  10. PRAVASTATIN [Concomitant]
  11. INSULIN [Concomitant]
  12. HYDROCHLOROTHIAZIDE W/LISINOPRIL [Concomitant]

REACTIONS (31)
  - HEADACHE [None]
  - DIZZINESS [None]
  - DYSPNOEA [None]
  - DYSPEPSIA [None]
  - DIASTOLIC DYSFUNCTION [None]
  - STAPHYLOCOCCAL INFECTION [None]
  - CHILLS [None]
  - FATIGUE [None]
  - HYPOKALAEMIA [None]
  - DERMATITIS CONTACT [None]
  - ERYTHEMA [None]
  - CELLULITIS [None]
  - ELECTROCARDIOGRAM ST SEGMENT ABNORMAL [None]
  - CHEST PAIN [None]
  - ANXIETY [None]
  - BLISTER [None]
  - CHEST DISCOMFORT [None]
  - VOMITING [None]
  - NAUSEA [None]
  - PANIC ATTACK [None]
  - PYREXIA [None]
  - ABDOMINAL PAIN [None]
  - MALAISE [None]
  - INFECTION [None]
  - ASTHENIA [None]
  - HYPERSENSITIVITY [None]
  - SKIN DISORDER [None]
  - RASH PUSTULAR [None]
  - DECREASED APPETITE [None]
  - HYPERHIDROSIS [None]
  - DYSPNOEA EXERTIONAL [None]
